FAERS Safety Report 6293667-7 (Version None)
Quarter: 2009Q3

REPORT INFORMATION
  Report Type: 
  Country: None (occurrence: None)
  Receive Date: 20090803
  Receipt Date: 20090721
  Transmission Date: 20100115
  Serious: Yes (Hospitalization, Other)
  Sender: FDA-Public Use
  Company Number: US-TYCO HEALTHCARE/MALLINCKRODT-T200901312

PATIENT
  Sex: Female
  Weight: 83.628 kg

DRUGS (10)
  1. OPTIMARK [Suspect]
     Indication: NUCLEAR MAGNETIC RESONANCE IMAGING
     Dosage: 20 ML, SINGLE
     Dates: start: 20050324, end: 20050324
  2. PROHANCE [Suspect]
     Indication: NUCLEAR MAGNETIC RESONANCE IMAGING
     Dosage: 17 ML, SINGLE
     Dates: start: 20040427, end: 20040427
  3. TYLENOL (CAPLET) [Concomitant]
     Dosage: UNK
  4. INSULIN [Concomitant]
     Dosage: 3 UNITS, QD (AM)
  5. VIGAMOX [Concomitant]
     Dosage: 1 DROP TO OS TID
  6. HYDROXYZINE [Concomitant]
     Dosage: 50 MG, TID PRN
  7. ALBUTEROL [Concomitant]
     Dosage: UNK
  8. ALLEGRA [Concomitant]
     Dosage: 180 MG, QD
  9. CLONIDINE [Concomitant]
     Dosage: 0.3 MG, UNK
     Route: 042
  10. NORVASC [Concomitant]
     Dosage: 10 MG, QD

REACTIONS (4)
  - ARTERIOVENOUS GRAFT THROMBOSIS [None]
  - NEPHROGENIC SYSTEMIC FIBROSIS [None]
  - OFF LABEL USE [None]
  - PERIORBITAL CELLULITIS [None]
